FAERS Safety Report 12777416 (Version 1)
Quarter: 2016Q3

REPORT INFORMATION
  Report Type: Report from Study
  Country: US (occurrence: US)
  Receive Date: 20160924
  Receipt Date: 20160924
  Transmission Date: 20161109
  Serious: Yes (Hospitalization, Other)
  Sender: FDA-Public Use
  Company Number: US-AMGEN-USASL2016126492

PATIENT
  Age: 46 Year
  Sex: Female

DRUGS (3)
  1. ENBREL [Suspect]
     Active Substance: ETANERCEPT
     Indication: RHEUMATOID ARTHRITIS
     Dosage: UNK
     Route: 065
  2. ENBREL [Suspect]
     Active Substance: ETANERCEPT
     Dosage: 50 MG, QWK
     Route: 065
  3. METHOTREXATE. [Concomitant]
     Active Substance: METHOTREXATE
     Dosage: UNK

REACTIONS (18)
  - General physical condition abnormal [Unknown]
  - Injection site pain [Unknown]
  - Vertigo [Unknown]
  - Gallbladder operation [Unknown]
  - Drug effect incomplete [Unknown]
  - Depression [Unknown]
  - Pancreatolithiasis [Unknown]
  - Tremor [Unknown]
  - Psychomotor hyperactivity [Unknown]
  - Decreased immune responsiveness [Unknown]
  - Cataract [Unknown]
  - Fall [Unknown]
  - Discomfort [Unknown]
  - Myocardial infarction [Unknown]
  - Pain [Unknown]
  - Renal disorder [Unknown]
  - Liver disorder [Unknown]
  - Hyperhidrosis [Unknown]

NARRATIVE: CASE EVENT DATE: 2015
